FAERS Safety Report 8340683-7 (Version None)
Quarter: 2012Q2

REPORT INFORMATION
  Report Type: 
  Country: None (occurrence: None)
  Receive Date: 20120503
  Receipt Date: 20120503
  Transmission Date: 20120825
  Serious: Yes (Hospitalization)
  Sender: FDA-Public Use
  Company Number: None

PATIENT
  Age: 73 Year
  Sex: Male

DRUGS (13)
  1. MEGESTROL ACETATE [Concomitant]
  2. REVLIMID [Suspect]
     Indication: MULTIPLE MYELOMA
     Dosage: 25 MG DAILY X 21/28 DAYS BY MOUTH
     Route: 048
     Dates: start: 20120217, end: 20120427
  3. MELPHALAN HYDROCHLORIDE [Concomitant]
  4. DEXAMETHASONE [Concomitant]
  5. SIMVASTATIN [Concomitant]
  6. OMEPRAZOLE [Concomitant]
  7. NAPROXEN [Concomitant]
  8. MORPHINE [Concomitant]
  9. ONDANSETRON [Concomitant]
  10. DOCUSATE SODIUM [Concomitant]
  11. M.V.I. [Concomitant]
  12. WARFARIN SODIUM [Concomitant]
  13. AMITRIPTYLINE HCL [Concomitant]

REACTIONS (5)
  - PANCYTOPENIA [None]
  - PNEUMONIA STREPTOCOCCAL [None]
  - RESPIRATORY FAILURE [None]
  - SEPSIS [None]
  - COAGULOPATHY [None]
